FAERS Safety Report 6936420-0 (Version None)
Quarter: 2010Q3

REPORT INFORMATION
  Report Type: 
  Country: None (occurrence: None)
  Receive Date: 20100818
  Receipt Date: 20100804
  Transmission Date: 20110219
  Serious: Yes (Other)
  Sender: FDA-Public Use
  Company Number: 232228J10USA

PATIENT
  Age: 54 Year
  Sex: Female
  Weight: 111 kg

DRUGS (5)
  1. REBIF [Suspect]
     Indication: MULTIPLE SCLEROSIS
     Dosage: 44 MCG, 3 IN 1 WK, SUBCUTANEOUS
     Route: 058
     Dates: start: 20070803
  2. LISINOPRIL [Concomitant]
  3. METFORMIN HCL [Concomitant]
  4. GLYBURIDE [Concomitant]
  5. LANTUS [Concomitant]

REACTIONS (4)
  - COLONIC POLYP [None]
  - DIVERTICULUM INTESTINAL [None]
  - THYROID CANCER [None]
  - THYROID NEOPLASM [None]
